FAERS Safety Report 8372340-5 (Version None)
Quarter: 2012Q2

REPORT INFORMATION
  Report Type: 
  Country: None (occurrence: None)
  Receive Date: 20120521
  Receipt Date: 20120518
  Transmission Date: 20120825
  Serious: Yes (Hospitalization)
  Sender: FDA-Public Use
  Company Number: US-PFIZER INC-2012121450

PATIENT
  Age: 83 Year
  Sex: Male

DRUGS (3)
  1. CELEBREX [Suspect]
     Dosage: UNK, 2X/DAY
     Route: 048
  2. CELEBREX [Suspect]
     Dosage: UNK, 2X/DAY
     Route: 048
  3. CELEBREX [Suspect]
     Dosage: UNK, 1X/DAY
     Route: 048

REACTIONS (1)
  - BACK PAIN [None]
